FAERS Safety Report 4577380-X (Version None)
Quarter: 2005Q1

REPORT INFORMATION
  Report Type: 
  Country: None (occurrence: None)
  Receive Date: 20050210
  Receipt Date: 20050128
  Transmission Date: 20050727
  Serious: Yes (Death)
  Sender: FDA-Public Use
  Company Number: AU-GLAXOSMITHKLINE-B0370633A

PATIENT
  Age: 44 Year
  Sex: Female

DRUGS (2)
  1. IMIGRAN [Suspect]
     Dosage: 3TAB MONTHLY
     Route: 048
  2. INDERAL [Suspect]
     Indication: ESSENTIAL HYPERTENSION

REACTIONS (2)
  - CHEST PAIN [None]
  - MYOCARDIAL ISCHAEMIA [None]
